FAERS Safety Report 9270758 (Version 2)
Quarter: 2013Q2

REPORT INFORMATION
  Report Type: Report from Study
  Country: US (occurrence: US)
  Receive Date: 20130506
  Receipt Date: 20130527
  Transmission Date: 20140414
  Serious: Yes (Other)
  Sender: FDA-Public Use
  Company Number: US-009507513-1304USA017416

PATIENT
  Sex: 0

DRUGS (3)
  1. RIBAVIRIN [Suspect]
     Indication: CHRONIC HEPATITIS C
     Dosage: UNK
     Route: 048
  2. VICTRELIS [Suspect]
     Indication: CHRONIC HEPATITIS C
     Dosage: UNK
     Route: 048
  3. TELAPREVIR [Suspect]
     Dosage: UNK

REACTIONS (5)
  - Ascites [Unknown]
  - Encephalopathy [Unknown]
  - Bleeding varicose vein [Unknown]
  - Anaemia [Unknown]
  - Rash [Unknown]
